FAERS Safety Report 15456507 (Version 4)
Quarter: 2019Q1

REPORT INFORMATION
  Report Type: Spontaneous
  Country: US (occurrence: US)
  Receive Date: 20181002
  Receipt Date: 20190114
  Transmission Date: 20190417
  Serious: Yes (Life-Threatening, Hospitalization, Other)
  Sender: FDA-Public Use
  Company Number: US-GILEAD-2018-0365798

PATIENT
  Age: 26 Year
  Sex: Male
  Weight: 94.4 kg

DRUGS (1)
  1. YESCARTA [Suspect]
     Active Substance: AXICABTAGENE CILOLEUCEL
     Indication: DIFFUSE LARGE B-CELL LYMPHOMA
     Dosage: 68 ML, ONCE
     Route: 042
     Dates: start: 20180910, end: 20180910

REACTIONS (10)
  - Cytokine release syndrome [Recovered/Resolved]
  - Pyrexia [Unknown]
  - Neurotoxicity [Recovered/Resolved]
  - Dysgraphia [Unknown]
  - Coma [Recovered/Resolved]
  - Brain oedema [Recovered/Resolved]
  - Gait inability [Recovered/Resolved]
  - Tachypnoea [Unknown]
  - Tachycardia [Unknown]
  - Confusional state [Unknown]

NARRATIVE: CASE EVENT DATE: 201809
